FAERS Safety Report 17117683 (Version 2)
Quarter: 2019Q4

REPORT INFORMATION
  Report Type: Spontaneous
  Country: RO (occurrence: RO)
  Receive Date: 20191205
  Receipt Date: 20191220
  Transmission Date: 20200122
  Serious: Yes (Death, Hospitalization, Other)
  Sender: FDA-Public Use
  Company Number: RO-MYLANLABS-2019M1119269

PATIENT
  Age: 41 Year
  Sex: Female

DRUGS (4)
  1. ZOLEDRONIC ACID HOSPIRA [Suspect]
     Active Substance: ZOLEDRONIC ACID
     Indication: METASTASES TO BONE
     Dosage: 4 MG, EVERY 3 WEEKS
  2. TRASTUZUMAB. [Suspect]
     Active Substance: TRASTUZUMAB
     Indication: BREAST CANCER METASTATIC
     Dosage: 8 MG/KG, LOADING DOSE
     Route: 042
     Dates: start: 201501
  3. TRASTUZUMAB. [Suspect]
     Active Substance: TRASTUZUMAB
     Dosage: 6 MG/KG, EVERY 3 WEEKS
     Route: 042
     Dates: start: 201501, end: 201706
  4. TRASTUZUMAB. [Suspect]
     Active Substance: TRASTUZUMAB
     Dosage: 3.6 MG/KG, EVERY 3 WEEKS, TRASTUZUMAB EMTANSINE
     Route: 042
     Dates: start: 201802

REACTIONS (6)
  - Vomiting [Recovered/Resolved]
  - Neoplasm progression [Unknown]
  - Metastases to central nervous system [Unknown]
  - Headache [Recovered/Resolved]
  - Neurological decompensation [Fatal]
  - General physical health deterioration [Not Recovered/Not Resolved]

NARRATIVE: CASE EVENT DATE: 201810
